FAERS Safety Report 6077601-0 (Version None)
Quarter: 2009Q1

REPORT INFORMATION
  Report Type: 
  Country: None (occurrence: None)
  Receive Date: 20090126
  Receipt Date: 20080626
  Transmission Date: 20090719
  Serious: Yes (Hospitalization, Disabling)
  Sender: FDA-Public Use
  Company Number: WAES 0806USA08838

PATIENT
  Sex: Male

DRUGS (2)
  1. PRIMAXIN [Suspect]
     Indication: INTESTINAL PERFORATION
     Dosage: 500 MG/IV
     Route: 042
  2. FLUCONAZOLE [Concomitant]

REACTIONS (1)
  - CONVULSION [None]
